FAERS Safety Report 17202213 (Version 1)
Quarter: 2019Q4

REPORT INFORMATION
  Report Type: Spontaneous
  Country: US (occurrence: US)
  Receive Date: 20191226
  Receipt Date: 20191226
  Transmission Date: 20200122
  Serious: Yes (Other)
  Sender: FDA-Public Use
  Company Number: US-AMGEN-USASP2019212752

PATIENT
  Age: 69 Year
  Sex: Female

DRUGS (1)
  1. REPATHA [Suspect]
     Active Substance: EVOLOCUMAB
     Indication: BLOOD CHOLESTEROL INCREASED
     Dosage: 140 MILLIGRAM, Q2WK
     Route: 065
     Dates: start: 20190806

REACTIONS (6)
  - Weight decreased [Unknown]
  - Arthralgia [Unknown]
  - Alopecia [Unknown]
  - Pain in extremity [Unknown]
  - Cardiac ablation [Unknown]
  - Back pain [Unknown]

NARRATIVE: CASE EVENT DATE: 2019
